FAERS Safety Report 23144691 (Version 1)
Quarter: 2023Q4

REPORT INFORMATION
  Report Type: Report from Study
  Country: US (occurrence: US)
  Receive Date: 20231103
  Receipt Date: 20231103
  Transmission Date: 20240110
  Serious: No
  Sender: FDA-Public Use
  Company Number: US-BIOVITRUM-2023-US-017360

PATIENT
  Age: 69 Year
  Sex: Female

DRUGS (1)
  1. KINERET [Suspect]
     Active Substance: ANAKINRA
     Indication: Product used for unknown indication
     Dosage: 100MG, ONCE DAILY (QD)
     Route: 058

REACTIONS (3)
  - Injection site pain [Unknown]
  - Injection site urticaria [Unknown]
  - Drug ineffective [Unknown]
